FAERS Safety Report 11228103 (Version 4)
Quarter: 2016Q1

REPORT INFORMATION
  Report Type: Spontaneous
  Country: US (occurrence: US)
  Receive Date: 20150630
  Receipt Date: 20160106
  Transmission Date: 20160525
  Serious: No
  Sender: FDA-Public Use
  Company Number: US-SHIRE-US201506739

PATIENT
  Sex: Female

DRUGS (2)
  1. LIALDA [Suspect]
     Active Substance: MESALAMINE
     Indication: PRODUCT USED FOR UNKNOWN INDICATION
     Dosage: UNK UNK, UNKNOWN
     Route: 048
  2. PREDNISONE. [Concomitant]
     Active Substance: PREDNISONE
     Indication: PRODUCT USED FOR UNKNOWN INDICATION
     Dosage: UNK, UNKNOWN
     Route: 065

REACTIONS (8)
  - Rash pruritic [Unknown]
  - Urticaria [Unknown]
  - Musculoskeletal stiffness [Unknown]
  - Headache [Unknown]
  - Feeling abnormal [Unknown]
  - Malaise [Unknown]
  - Nervousness [Unknown]
  - Neck pain [Unknown]

NARRATIVE: CASE EVENT DATE: 2015
